FAERS Safety Report 9841839 (Version 1)
Quarter: 2013Q4

REPORT INFORMATION
  Report Type: Spontaneous
  Country: US (occurrence: None)
  Receive Date: 20131219
  Receipt Date: 20131219
  Transmission Date: 20140711
  Serious: Yes (Other)
  Sender: FDA-Public Use
  Company Number: 163-20785-13044244

PATIENT
  Age: 55 Year
  Sex: Female
  Weight: 62.23 kg

DRUGS (9)
  1. THALOMID [Suspect]
     Indication: PLASMA CELL MYELOMA
     Dosage: 1 IN 1 D
     Route: 048
     Dates: start: 201111, end: 201205
  2. MULTIVITAMINS [Concomitant]
  3. CALCIUM WITH VITAMIN D [Concomitant]
  4. FISH OIL [Concomitant]
  5. ADULT LOW DOSE ASPIRIN [Concomitant]
  6. KEPPRA [Concomitant]
  7. MELPHALAN [Concomitant]
  8. PREDNISONE [Concomitant]
  9. BISPHOSPHONATE [Concomitant]

REACTIONS (1)
  - Pancytopenia [None]
